FAERS Safety Report 5258956-3 (Version None)
Quarter: 2007Q1

REPORT INFORMATION
  Report Type: 
  Country: None (occurrence: None)
  Receive Date: 20061217
  Receipt Date: 20051027
  Transmission Date: 20070707
  Serious: Yes (Hospitalization)
  Sender: FDA-Public Use
  Company Number: US-JNJFOC-20051006045

PATIENT
  Age: 70 Year
  Sex: Male

DRUGS (2)
  1. LEVAQUIN [Suspect]
     Indication: CELLULITIS
     Dosage: 750 MG, ORAL 500 MG, 1 IN 1 DAY, ORAL
     Route: 048
     Dates: start: 20051018, end: 20051021
  2. LEVAQUIN [Suspect]
     Indication: CELLULITIS
     Dosage: 500 MG, INTRAVENOUS
     Route: 042
     Dates: start: 20051022, end: 20051022

REACTIONS (4)
  - BRADYCARDIA [None]
  - CARDIAC ARREST [None]
  - CONVULSION [None]
  - MEDICATION ERROR [None]
